FAERS Safety Report 17398606 (Version 1)
Quarter: 2020Q1

REPORT INFORMATION
  Report Type: Report from Study
  Country: FR (occurrence: FR)
  Receive Date: 20200210
  Receipt Date: 20200210
  Transmission Date: 20200409
  Serious: Yes (Hospitalization, Other)
  Sender: FDA-Public Use
  Company Number: PHHY2014FR067970

PATIENT
  Age: 33 Year
  Sex: Male
  Weight: 115 kg

DRUGS (6)
  1. ACTISKENAN [Concomitant]
     Active Substance: MORPHINE SULFATE
     Indication: INTERVERTEBRAL DISC PROTRUSION
     Dosage: 10 MG
     Route: 065
     Dates: start: 20140220
  2. SKENAN [Concomitant]
     Active Substance: MORPHINE SULFATE
     Indication: INTERVERTEBRAL DISC PROTRUSION
     Dosage: 80 MG
     Route: 065
     Dates: start: 20140220
  3. EFFEXOR [Concomitant]
     Active Substance: VENLAFAXINE HYDROCHLORIDE
     Indication: DEPRESSION
     Dosage: 37.5 MG
     Route: 065
     Dates: start: 20130415, end: 20140407
  4. EFFEXOR [Concomitant]
     Active Substance: VENLAFAXINE HYDROCHLORIDE
     Route: 065
     Dates: end: 20140705
  5. SIGNIFOR [Suspect]
     Active Substance: PASIREOTIDE DIASPARTATE
     Indication: PITUITARY-DEPENDENT CUSHING^S SYNDROME
     Dosage: 600 UG, BID
     Route: 058
     Dates: start: 20140220, end: 20140327
  6. SIGNIFOR [Suspect]
     Active Substance: PASIREOTIDE DIASPARTATE
     Dosage: 900 UG, BID
     Route: 058
     Dates: start: 20140328, end: 20140401

REACTIONS (6)
  - Dyspnoea [Recovered/Resolved]
  - Neoplasm progression [Unknown]
  - Thrombosis [Recovered/Resolved]
  - Cortisol free urine increased [Unknown]
  - Nausea [Unknown]
  - Diabetes mellitus [Unknown]

NARRATIVE: CASE EVENT DATE: 20140310
